FAERS Safety Report 16285311 (Version 2)
Quarter: 2019Q2

REPORT INFORMATION
  Report Type: Report from Study
  Country: FR (occurrence: FR)
  Receive Date: 20190508
  Receipt Date: 20190510
  Transmission Date: 20190711
  Serious: Yes (Death, Other)
  Sender: FDA-Public Use
  Company Number: FR-JAZZ-2019-FR-006262

PATIENT

DRUGS (1)
  1. DEFITELIO [Suspect]
     Active Substance: DEFIBROTIDE SODIUM
     Indication: PROPHYLAXIS
     Dosage: 24.2 MG/KG, QD
     Dates: start: 20150131, end: 20150306

REACTIONS (4)
  - Shock haemorrhagic [Unknown]
  - Disseminated intravascular coagulation [Unknown]
  - Multiple organ dysfunction syndrome [Fatal]
  - Embolism [Unknown]

NARRATIVE: CASE EVENT DATE: 20151122
